FAERS Safety Report 24848773 (Version 1)
Quarter: 2025Q1

REPORT INFORMATION
  Report Type: Report from Study
  Country: US (occurrence: US)
  Receive Date: 20250116
  Receipt Date: 20250116
  Transmission Date: 20250409
  Serious: Yes (Other)
  Sender: NOVARTIS
  Company Number: US-002147023-NVSC2025US005885

PATIENT
  Sex: Female
  Weight: 106.59 kg

DRUGS (3)
  1. GLEEVEC [Suspect]
     Active Substance: IMATINIB MESYLATE
     Indication: Product used for unknown indication
     Dosage: UNK UNK, BID
     Route: 048
  2. TASIGNA [Suspect]
     Active Substance: NILOTINIB
     Indication: Product used for unknown indication
     Dosage: UNK UNK, QD
     Route: 048
  3. SCEMBLIX [Suspect]
     Active Substance: ASCIMINIB HYDROCHLORIDE
     Indication: Product used for unknown indication
     Dosage: 80 MG, QD
     Route: 048

REACTIONS (6)
  - Philadelphia chromosome positive [Unknown]
  - Lymphoma [Unknown]
  - Leukaemia [Unknown]
  - Headache [Unknown]
  - Depressed mood [Unknown]
  - Stress [Unknown]
